FAERS Safety Report 6058595-0 (Version None)
Quarter: 2009Q1

REPORT INFORMATION
  Report Type: 
  Country: None (occurrence: None)
  Receive Date: 20090130
  Receipt Date: 20090126
  Transmission Date: 20090719
  Serious: Yes (Hospitalization)
  Sender: FDA-Public Use
  Company Number: FR-WYE-G03002609

PATIENT
  Age: 17 Year
  Sex: Female

DRUGS (4)
  1. TAZOCILLINE [Suspect]
     Dosage: 1.2 G TOTAL DAILY
     Route: 042
     Dates: start: 20070907, end: 20071008
  2. GENTAMICIN [Suspect]
     Dosage: UNKNOWN
     Route: 042
     Dates: start: 20070907, end: 20070919
  3. GENTAMICIN [Suspect]
     Dosage: 90 MG TOTAL DAILY
     Route: 042
     Dates: start: 20071002, end: 20071008
  4. VANCOMYCIN [Suspect]
     Dosage: 2.1 G TOTAL DAILY
     Route: 042
     Dates: start: 20070907, end: 20071005

REACTIONS (7)
  - DRUG ERUPTION [None]
  - FACE OEDEMA [None]
  - LEUKOCYTOCLASTIC VASCULITIS [None]
  - PYREXIA [None]
  - RASH GENERALISED [None]
  - RASH MACULOVESICULAR [None]
  - RASH PRURITIC [None]
